FAERS Safety Report 24122670 (Version 3)
Quarter: 2024Q3

REPORT INFORMATION
  Report Type: Report from Study
  Country: DE (occurrence: DE)
  Receive Date: 20240723
  Receipt Date: 20240919
  Transmission Date: 20241017
  Serious: Yes (Other)
  Sender: JOHNSON AND JOHNSON
  Company Number: DE-JNJFOC-20240745649

PATIENT
  Age: 64 Year
  Sex: Female

DRUGS (3)
  1. DARATUMUMAB [Suspect]
     Active Substance: DARATUMUMAB
     Indication: Plasma cell myeloma
     Dosage: 15
     Route: 065
     Dates: start: 20240702, end: 20240702
  2. DARATUMUMAB [Suspect]
     Active Substance: DARATUMUMAB
     Dosage: 15
     Route: 065
     Dates: start: 20240709, end: 20240709
  3. DARATUMUMAB [Suspect]
     Active Substance: DARATUMUMAB
     Dosage: 15; RECENT DOSE WAS ON 16-JUL-2024
     Route: 065
     Dates: start: 20240716

REACTIONS (4)
  - Leukopenia [Recovered/Resolved]
  - Neutropenia [Not Recovered/Not Resolved]
  - Lymphopenia [Recovered/Resolved]
  - Anaemia [Recovered/Resolved]

NARRATIVE: CASE EVENT DATE: 20240705
